FAERS Safety Report 7926824-1 (Version None)
Quarter: 2011Q4

REPORT INFORMATION
  Report Type: 
  Country: None (occurrence: None)
  Receive Date: 20111118
  Receipt Date: 20111108
  Transmission Date: 20120403
  Serious: Yes (Other)
  Sender: FDA-Public Use
  Company Number: US-BAYER-2011-026300

PATIENT
  Age: 21 Year
  Sex: Female
  Weight: 45 kg

DRUGS (9)
  1. AMOXICILLIN [Concomitant]
     Dosage: UNK
     Dates: start: 20070901, end: 20071001
  2. CHLORDIAZEPOXIDE W/CLIDINIUM [Concomitant]
     Dosage: UNK
     Dates: start: 20081114
  3. IBUPROFEN (ADVIL) [Concomitant]
     Indication: PAIN
     Dosage: UNK
     Dates: start: 20090301
  4. YAZ [Suspect]
     Indication: MENSTRUAL CYCLE MANAGEMENT
  5. SYMAX [Concomitant]
     Dosage: UNK
     Dates: start: 20080925
  6. HYOSCYAMINE [Concomitant]
     Indication: GASTROOESOPHAGEAL REFLUX DISEASE
     Dosage: UNK
     Dates: start: 20080901, end: 20081101
  7. XIFAXAN [Concomitant]
     Dosage: UNK
     Dates: start: 20081117
  8. YAZ [Suspect]
     Indication: CONTRACEPTION
     Dosage: UNK
     Dates: start: 20071227, end: 20080601
  9. NAPROXEN [Concomitant]
     Dosage: UNK
     Dates: start: 20080609

REACTIONS (3)
  - BILIARY DYSKINESIA [None]
  - PAIN [None]
  - GALLBLADDER DISORDER [None]
